FAERS Safety Report 11448878 (Version 1)
Quarter: 2015Q3

REPORT INFORMATION
  Report Type: Spontaneous
  Country: FR (occurrence: FR)
  Receive Date: 20150902
  Receipt Date: 20150902
  Transmission Date: 20151125
  Serious: Yes (Hospitalization, Other)
  Sender: FDA-Public Use
  Company Number: FR-PFIZER INC-2015282857

PATIENT
  Age: 83 Year
  Sex: Female

DRUGS (7)
  1. STILNOX [Suspect]
     Active Substance: ZOLPIDEM TARTRATE
     Dosage: 1 DF, 1X/DAY
     Route: 048
  2. AVASTIN [Suspect]
     Active Substance: BEVACIZUMAB
     Indication: MALIGNANT PERITONEAL NEOPLASM
     Dosage: ONE DF ONCE EVERY TWO WEEKS
     Route: 041
     Dates: start: 20150618
  3. IXPRIM [Concomitant]
     Active Substance: ACETAMINOPHEN\TRAMADOL HYDROCHLORIDE
  4. FLUOROURACIL. [Suspect]
     Active Substance: FLUOROURACIL
     Indication: MALIGNANT PERITONEAL NEOPLASM
     Dosage: ONE DF ONCE EVERY TWO WEEKS
     Route: 041
     Dates: start: 20150618
  5. NEOMERCAZOLE [Concomitant]
     Active Substance: CARBIMAZOLE
  6. LEUCOVORIN. [Concomitant]
     Active Substance: LEUCOVORIN
     Indication: ADENOCARCINOMA OF COLON
     Dosage: UNK
  7. LYRICA [Suspect]
     Active Substance: PREGABALIN
     Indication: PARAESTHESIA
     Dosage: 75 MG, 2X/DAY
     Route: 048

REACTIONS (4)
  - Dyspnoea [Unknown]
  - Pulmonary embolism [Unknown]
  - Chest pain [Unknown]
  - Presyncope [Unknown]

NARRATIVE: CASE EVENT DATE: 201508
